FAERS Safety Report 23588207 (Version 1)
Quarter: 2024Q1

REPORT INFORMATION
  Report Type: Spontaneous
  Country: GB (occurrence: GB)
  Receive Date: 20240302
  Receipt Date: 20240302
  Transmission Date: 20240410
  Serious: Yes (Other)
  Sender: FDA-Public Use
  Company Number: GB-MHRA-MED-202402081534218670-BGRSW

PATIENT
  Age: 25 Year
  Sex: Female
  Weight: 48 kg

DRUGS (6)
  1. SUMATRIPTAN [Suspect]
     Active Substance: SUMATRIPTAN
     Indication: Migraine
     Dosage: UNK
     Route: 065
     Dates: start: 20201101
  2. TOPIRAMATE [Suspect]
     Active Substance: TOPIRAMATE
     Indication: Migraine
     Dosage: 50 MILLIGRAM, TWO TIMES A DAY
     Route: 065
  3. MAGNESIUM [Suspect]
     Active Substance: MAGNESIUM
     Indication: Migraine
     Dosage: UNK
     Route: 065
     Dates: start: 20210901
  4. BECLOMETHASONE DIPROPIONATE [Concomitant]
     Active Substance: BECLOMETHASONE DIPROPIONATE
     Indication: Asthma
     Dosage: UNK
     Route: 065
     Dates: start: 20210601
  5. DEPO-PROVERA [Concomitant]
     Active Substance: MEDROXYPROGESTERONE ACETATE
     Indication: Product used for unknown indication
     Dosage: UNK
     Route: 065
     Dates: start: 20220301
  6. OMEPRAZOLE [Concomitant]
     Active Substance: OMEPRAZOLE
     Indication: Hiatus hernia
     Dosage: UNK
     Route: 065
     Dates: start: 20190201

REACTIONS (6)
  - Myalgia [Recovered/Resolved]
  - Insomnia [Recovered/Resolved]
  - Contusion [Recovered/Resolved]
  - Fatigue [Unknown]
  - Palpitations [Unknown]
  - Drug interaction [Unknown]

NARRATIVE: CASE EVENT DATE: 20220301
